FAERS Safety Report 16183023 (Version 3)
Quarter: 2019Q2

REPORT INFORMATION
  Report Type: Spontaneous
  Country: None (occurrence: US)
  Receive Date: 20190411
  Receipt Date: 20190509
  Transmission Date: 20190711
  Serious: Yes (Hospitalization, Other)
  Sender: FDA-Public Use
  Company Number: US-ACHAOGEN INC-US-ACHN-19-00002

PATIENT
  Age: 68 Year
  Sex: Female

DRUGS (5)
  1. METFORMIN [Concomitant]
     Active Substance: METFORMIN HYDROCHLORIDE
     Indication: PRODUCT USED FOR UNKNOWN INDICATION
  2. ZEMDRI [Suspect]
     Active Substance: PLAZOMICIN
     Indication: URINARY TRACT INFECTION
  3. LONG-ACTING INSULIN [Concomitant]
     Active Substance: INSULIN NOS
     Indication: PRODUCT USED FOR UNKNOWN INDICATION
  4. ALPRAZOLAM. [Concomitant]
     Active Substance: ALPRAZOLAM
     Indication: PRODUCT USED FOR UNKNOWN INDICATION
  5. ZEMDRI [Suspect]
     Active Substance: PLAZOMICIN
     Indication: PYELONEPHRITIS

REACTIONS (5)
  - Ototoxicity [Recovering/Resolving]
  - Vertigo [Recovering/Resolving]
  - Dehydration [Recovering/Resolving]
  - Balance disorder [Recovering/Resolving]
  - Dizziness [Recovering/Resolving]
